FAERS Safety Report 16536049 (Version 1)
Quarter: 2019Q3

REPORT INFORMATION
  Report Type: Spontaneous
  Country: US (occurrence: US)
  Receive Date: 20190705
  Receipt Date: 20190705
  Transmission Date: 20191004
  Serious: No
  Sender: FDA-Public Use
  Company Number: US-PFIZER INC-2019273269

PATIENT
  Sex: Female

DRUGS (1)
  1. ADVIL [Suspect]
     Active Substance: IBUPROFEN
     Indication: EAR PAIN
     Dosage: 2 DF, UNK (TOOK 2 ADVIL, NEXT DAY TOOK 2 MORE)

REACTIONS (1)
  - Skin discolouration [Unknown]
